FAERS Safety Report 18945395 (Version 1)
Quarter: 2021Q1

REPORT INFORMATION
  Report Type: Spontaneous
  Country: US (occurrence: US)
  Receive Date: 20210226
  Receipt Date: 20210226
  Transmission Date: 20210420
  Serious: Yes (Hospitalization)
  Sender: FDA-Public Use
  Company Number: US-MYLANLABS-2021M1011438

PATIENT
  Age: 41 Year
  Sex: Male

DRUGS (1)
  1. NAPROXEN. [Suspect]
     Active Substance: NAPROXEN
     Indication: PAIN
     Route: 065

REACTIONS (6)
  - Epistaxis [Unknown]
  - Haematuria [Unknown]
  - Thrombocytopenia [Recovering/Resolving]
  - Petechiae [Unknown]
  - Haemarthrosis [Unknown]
  - Gingival bleeding [Unknown]
